FAERS Safety Report 4430405-4 (Version None)
Quarter: 2004Q3

REPORT INFORMATION
  Report Type: 
  Country: None (occurrence: None)
  Receive Date: 20040820
  Receipt Date: 20040806
  Transmission Date: 20050211
  Serious: Yes (Hospitalization)
  Sender: FDA-Public Use
  Company Number: DE-MERCK-0408DEU00047

PATIENT
  Age: 45 Year
  Sex: Male

DRUGS (3)
  1. ZETIA [Suspect]
     Route: 048
     Dates: start: 20040806, end: 20040806
  2. IBUPROFEN [Suspect]
     Route: 048
     Dates: start: 20040806, end: 20040806
  3. SIMVASTATIN [Suspect]
     Route: 048
     Dates: start: 20040806, end: 20040806

REACTIONS (3)
  - NO ADVERSE EFFECT [None]
  - OVERDOSE [None]
  - SUICIDE ATTEMPT [None]
